FAERS Safety Report 7085354-2 (Version None)
Quarter: 2010Q4

REPORT INFORMATION
  Report Type: 
  Country: None (occurrence: None)
  Receive Date: 20101105
  Receipt Date: 20101027
  Transmission Date: 20110411
  Serious: Yes (Hospitalization)
  Sender: FDA-Public Use
  Company Number: BR-ASTRAZENECA-2010SE51888

PATIENT
  Age: 702 Month
  Sex: Female
  Weight: 87 kg

DRUGS (5)
  1. ARIMIDEX [Suspect]
     Indication: BREAST CANCER
     Dosage: DAILY
     Route: 048
     Dates: start: 20080401
  2. ATACAND HCT [Suspect]
     Indication: HYPERTENSION
     Dosage: 16/12.5 MG 1/2 TABLET DAILY
     Route: 048
     Dates: start: 20101023
  3. PURAN T4 [Concomitant]
     Indication: THYROIDECTOMY
     Route: 048
     Dates: start: 20081001
  4. ENALAPRIL MALEATE [Concomitant]
     Indication: HYPERTENSION
     Dosage: OD
     Route: 048
     Dates: start: 20090101, end: 20090101
  5. BENICAR [Concomitant]
     Indication: HYPERTENSION
     Dosage: OD
     Route: 048
     Dates: start: 20090101, end: 20101022

REACTIONS (4)
  - DIZZINESS [None]
  - HYPERTENSION [None]
  - SOMNOLENCE [None]
  - THYROID CANCER [None]
